FAERS Safety Report 13644151 (Version 4)
Quarter: 2017Q3

REPORT INFORMATION
  Report Type: Report from Study
  Country: US (occurrence: US)
  Receive Date: 20170612
  Receipt Date: 20170706
  Transmission Date: 20171127
  Serious: Yes (Hospitalization)
  Sender: FDA-Public Use
  Company Number: US-ACTELION-A-US2017-154503

PATIENT
  Age: 45 Year
  Sex: Female
  Weight: 68.27 kg

DRUGS (4)
  1. VELETRI [Suspect]
     Active Substance: EPOPROSTENOL
     Dosage: 13 NG/KG, PER MIN
     Route: 042
  2. VELETRI [Suspect]
     Active Substance: EPOPROSTENOL
     Indication: PULMONARY HYPERTENSION
     Dosage: 19 NG/KG, PER MIN
     Route: 042
  3. OPSITE [Concomitant]
     Active Substance: POLYURETHANE
  4. VELETRI [Suspect]
     Active Substance: EPOPROSTENOL
     Dosage: 10 NG/KG, PER MIN
     Route: 042
     Dates: start: 20170516

REACTIONS (10)
  - Pain in jaw [Unknown]
  - Nausea [Unknown]
  - Flushing [Unknown]
  - Vomiting [Unknown]
  - Pain in extremity [Unknown]
  - Catheter site pruritus [Unknown]
  - Deep vein thrombosis [Recovered/Resolved]
  - Myalgia [Unknown]
  - Dermatitis contact [Recovering/Resolving]
  - Diarrhoea [Unknown]

NARRATIVE: CASE EVENT DATE: 201705
